FAERS Safety Report 16998799 (Version 1)
Quarter: 2019Q4

REPORT INFORMATION
  Report Type: Report from Study
  Country: GB (occurrence: GB)
  Receive Date: 20191106
  Receipt Date: 20191106
  Transmission Date: 20200122
  Serious: Yes (Other)
  Sender: FDA-Public Use
  Company Number: GB-TEVA-2019-GB-1132700

PATIENT
  Sex: Female

DRUGS (7)
  1. AMITRIPTYLINE [Concomitant]
     Active Substance: AMITRIPTYLINE
     Dosage: 50 MG
  2. COPAXONE [Suspect]
     Active Substance: GLATIRAMER ACETATE
     Indication: PRODUCT USED FOR UNKNOWN INDICATION
     Route: 058
     Dates: start: 201606
  3. GABAPENTIN 600MG [Concomitant]
     Active Substance: GABAPENTIN
     Dosage: 1800 MILLIGRAM DAILY;
  4. GABAPENTIN 300MG [Concomitant]
     Active Substance: GABAPENTIN
  5. AMITRIPTYLINE [Concomitant]
     Active Substance: AMITRIPTYLINE
     Dosage: 125MG TABLET
  6. AMANTADINE 100MG [Concomitant]
     Active Substance: AMANTADINE
     Dosage: 200 MILLIGRAM DAILY;
  7. CHOLECALCIFEROL [Concomitant]
     Active Substance: CHOLECALCIFEROL
     Dosage: 5000MG

REACTIONS (4)
  - Lower respiratory tract infection [Unknown]
  - Product dose omission [Unknown]
  - Oropharyngeal discomfort [Unknown]
  - Inappropriate schedule of product administration [Unknown]
